FAERS Safety Report 8717333 (Version 2)
Quarter: 2012Q4

REPORT INFORMATION
  Report Type: 
  Country: US (occurrence: US)
  Receive Date: 20120810
  Receipt Date: 20120830
  Transmission Date: 20130627
  Serious: No
  Sender: FDA-Public Use
  Company Number: US-PFIZER INC-2012192098

PATIENT
  Age: 18 Year
  Sex: Female
  Weight: 58.05 kg

DRUGS (5)
  1. DEPO-PROVERA [Suspect]
     Indication: CONTRACEPTION
     Dosage: 150 mg, every 3 months
     Route: 030
     Dates: start: 20120514, end: 20120806
  2. DEPO-PROVERA [Suspect]
     Indication: MENOMETRORRHAGIA
  3. DEPO-PROVERA [Suspect]
     Indication: POLYCYSTIC OVARIES
  4. PAXIL [Concomitant]
     Dosage: UNK
  5. PREVACID [Concomitant]
     Dosage: UNK

REACTIONS (3)
  - Menorrhagia [Not Recovered/Not Resolved]
  - Pallor [Not Recovered/Not Resolved]
  - Fatigue [Not Recovered/Not Resolved]
